FAERS Safety Report 24568339 (Version 2)
Quarter: 2024Q4

REPORT INFORMATION
  Report Type: Spontaneous
  Country: FR (occurrence: FR)
  Receive Date: 20241031
  Receipt Date: 20241202
  Transmission Date: 20250114
  Serious: Yes (Hospitalization)
  Sender: GLENMARK
  Company Number: FR-GLENMARK PHARMACEUTICALS-2024GMK095189

PATIENT

DRUGS (2)
  1. TROSPIUM [Suspect]
     Active Substance: TROSPIUM
     Indication: Medication error
     Dosage: 20 MILLIGRAM
     Route: 048
     Dates: start: 20240911, end: 20240911
  2. CLOMIPRAMINE HYDROCHLORIDE [Suspect]
     Active Substance: CLOMIPRAMINE HYDROCHLORIDE
     Indication: Medication error
     Dosage: 3 DOSAGE FORM
     Route: 048
     Dates: start: 20240911, end: 20240911

REACTIONS (4)
  - Pallor [Recovered/Resolved]
  - Vomiting [Not Recovered/Not Resolved]
  - Nausea [Recovered/Resolved]
  - Wrong patient received product [Unknown]

NARRATIVE: CASE EVENT DATE: 20240911
